FAERS Safety Report 6061320-0 (Version None)
Quarter: 2009Q1

REPORT INFORMATION
  Report Type: 
  Country: None (occurrence: None)
  Receive Date: 20090202
  Receipt Date: 20090128
  Transmission Date: 20090719
  Serious: Yes (Disabling)
  Sender: FDA-Public Use
  Company Number: GB-MERCK-0901GBR00089

PATIENT
  Age: 55 Year
  Sex: Male
  Weight: 95 kg

DRUGS (2)
  1. ZOCOR [Suspect]
     Indication: BLOOD TRIGLYCERIDES INCREASED
     Route: 048
     Dates: start: 20081101, end: 20081201
  2. ATORVASTATIN [Suspect]
     Indication: BLOOD TRIGLYCERIDES INCREASED
     Route: 065
     Dates: start: 20081201, end: 20081230

REACTIONS (5)
  - ABNORMAL DREAMS [None]
  - HYPERSOMNIA [None]
  - LISTLESS [None]
  - PRURITUS [None]
  - SKIN EXFOLIATION [None]
